FAERS Safety Report 12547126 (Version 1)
Quarter: 2016Q3

REPORT INFORMATION
  Report Type: Report from Study
  Country: BR (occurrence: BR)
  Receive Date: 20160711
  Receipt Date: 20160711
  Transmission Date: 20161109
  Serious: Yes (Hospitalization, Other)
  Sender: FDA-Public Use
  Company Number: BR-BRISTOL-MYERS SQUIBB COMPANY-BMS-2016-041014

PATIENT
  Age: 56 Year
  Sex: Male
  Weight: 76 kg

DRUGS (2)
  1. NIVOLUMAB [Suspect]
     Active Substance: NIVOLUMAB
     Indication: NON-SMALL CELL LUNG CANCER
     Dosage: 3 MG/KG, UNK,225 UNIT NOS,TOTAL
     Route: 042
     Dates: start: 20151022
  2. TANDRILAX [Concomitant]
     Active Substance: ACETAMINOPHEN\CAFFEINE\CARISOPRODOL\DICLOFENAC SODIUM
     Indication: PRODUCT USED FOR UNKNOWN INDICATION
     Dosage: 350 MG, UNK
     Route: 048
     Dates: start: 201508

REACTIONS (2)
  - Diverticular fistula [Recovered/Resolved]
  - Diverticular perforation [Recovered/Resolved]

NARRATIVE: CASE EVENT DATE: 20160517
